FAERS Safety Report 6984119-7 (Version None)
Quarter: 2010Q3

REPORT INFORMATION
  Report Type: 
  Country: None (occurrence: None)
  Receive Date: 20100915
  Receipt Date: 20090610
  Transmission Date: 20110219
  Serious: No
  Sender: FDA-Public Use
  Company Number: US-WYE-H09721609

PATIENT
  Sex: Female
  Weight: 71.73 kg

DRUGS (2)
  1. ADVIL PM [Suspect]
     Indication: INSOMNIA
     Dosage: 2 CAPLETS EVERY NIGHT
     Route: 048
     Dates: start: 20090527, end: 20090608
  2. ALEVE (CAPLET) [Concomitant]

REACTIONS (4)
  - BLISTER [None]
  - HAEMORRHOIDS [None]
  - RASH [None]
  - URTICARIA [None]
